FAERS Safety Report 26045810 (Version 1)
Quarter: 2025Q4

REPORT INFORMATION
  Report Type: Spontaneous
  Country: US (occurrence: None)
  Receive Date: 20251113
  Receipt Date: 20251113
  Transmission Date: 20260117
  Serious: Yes (Hospitalization)
  Sender: FDA-CTU
  Company Number: None

PATIENT
  Sex: Female

DRUGS (11)
  1. LENALIDOMIDE [Suspect]
     Active Substance: LENALIDOMIDE
     Indication: Myelodysplastic syndrome
     Dosage: TAKE 1 CAPSULE (5 MG TOTAL) BY MOUTH DAILY. DO NOT CRUSH, CUT, QR OPEN.
     Route: 048
     Dates: start: 20251002
  2. ALBUTEROL SULFATE [Concomitant]
     Active Substance: ALBUTEROL SULFATE
  3. ALLOPURINOL TAB 300MG [Concomitant]
  4. ATENOL/CHLOR TAB 50-25MG [Concomitant]
  5. ATORVASTATIN [Concomitant]
     Active Substance: ATORVASTATIN
  6. FERROUS SULF TAB 325MG [Concomitant]
  7. FLUTICAS HFA AER 110MCG [Concomitant]
  8. MULTIPLE VIT TAB [Concomitant]
  9. POLYVINYL AL SOL 1.4% OP [Concomitant]
  10. SYSTANE GEL ORO 0.4-0.3% [Concomitant]
  11. TRAMADOL HCL TAB 50MG [Concomitant]

REACTIONS (2)
  - Cardiac failure congestive [None]
  - Product dose omission issue [None]
